FAERS Safety Report 25947779 (Version 1)
Quarter: 2025Q4

REPORT INFORMATION
  Report Type: Spontaneous
  Country: US (occurrence: US)
  Receive Date: 20251022
  Receipt Date: 20251022
  Transmission Date: 20260118
  Serious: No
  Sender: MYLAN
  Company Number: US-MYLANLABS-2025M1087458

PATIENT
  Sex: Female

DRUGS (4)
  1. ESTRADIOL [Suspect]
     Active Substance: ESTRADIOL
     Indication: Product used for unknown indication
     Dosage: 0.01 PERCENT
  2. ESTRADIOL [Suspect]
     Active Substance: ESTRADIOL
     Dosage: 0.01 PERCENT
     Route: 067
  3. ESTRADIOL [Suspect]
     Active Substance: ESTRADIOL
     Dosage: 0.01 PERCENT
     Route: 067
  4. ESTRADIOL [Suspect]
     Active Substance: ESTRADIOL
     Dosage: 0.01 PERCENT

REACTIONS (2)
  - Dizziness [Unknown]
  - Expired product administered [Unknown]
